FAERS Safety Report 19093572 (Version 6)
Quarter: 2023Q1

REPORT INFORMATION
  Report Type: Report from Study
  Country: US (occurrence: US)
  Receive Date: 20210405
  Receipt Date: 20230106
  Transmission Date: 20230417
  Serious: Yes (Hospitalization, Other)
  Sender: FDA-Public Use
  Company Number: US-TAKEDA-US202021948

PATIENT
  Age: 61 Year
  Sex: Female
  Weight: 84 kg

DRUGS (21)
  1. LANADELUMAB [Suspect]
     Active Substance: LANADELUMAB
     Indication: Hereditary angioedema
     Dosage: UNK
     Route: 065
  2. METHOTREXATE [Concomitant]
     Active Substance: METHOTREXATE
     Indication: Immune system disorder
     Dosage: 2.5 MILLIGRAM
     Route: 048
     Dates: start: 201910, end: 2020
  3. DICLOFENAC [Concomitant]
     Active Substance: DICLOFENAC
     Indication: Systemic lupus erythematosus
     Dosage: UNK
     Route: 061
     Dates: start: 20200612
  4. PREDNISONE [Concomitant]
     Active Substance: PREDNISONE
     Indication: Systemic lupus erythematosus
     Dosage: 10 MILLIGRAM
     Route: 048
     Dates: start: 20200214, end: 20200314
  5. PREDNISONE [Concomitant]
     Active Substance: PREDNISONE
     Dosage: 10 MILLIGRAM
     Route: 048
     Dates: start: 20220315
  6. ACETAMINOPHEN [Concomitant]
     Active Substance: ACETAMINOPHEN
     Indication: COVID-19
     Dosage: 1000 MILLIGRAM
     Route: 048
     Dates: start: 20210128, end: 20210128
  7. ACETAMINOPHEN [Concomitant]
     Active Substance: ACETAMINOPHEN
     Dosage: 500 MILLIGRAM
     Route: 048
     Dates: start: 20210129, end: 20210202
  8. AZITHROMYCIN [Concomitant]
     Active Substance: AZITHROMYCIN
     Indication: COVID-19
     Dosage: 500 MILLIGRAM
     Route: 048
     Dates: start: 20210128, end: 20210202
  9. BENZONATATE [Concomitant]
     Active Substance: BENZONATATE
     Indication: COVID-19
     Dosage: 100 MILLIGRAM
     Route: 048
     Dates: start: 20210128, end: 20210202
  10. BENZONATATE [Concomitant]
     Active Substance: BENZONATATE
     Dosage: 100 MILLIGRAM
     Route: 048
     Dates: start: 20210203, end: 20210228
  11. CEFTRIAXONE [Concomitant]
     Active Substance: CEFTRIAXONE
     Indication: COVID-19
     Dosage: 2 GRAM
     Route: 042
     Dates: start: 20210128, end: 20210201
  12. DEXAMETHASONE [Concomitant]
     Active Substance: DEXAMETHASONE
     Indication: COVID-19
     Dosage: 6 MILLIGRAM
     Route: 042
     Dates: start: 20210128, end: 20210202
  13. DEXTROMETHORPHAN HYDROBROMIDE\GUAIFENESIN [Concomitant]
     Active Substance: DEXTROMETHORPHAN HYDROBROMIDE\GUAIFENESIN
     Indication: COVID-19
     Dosage: 20 MILLILITER
     Route: 048
     Dates: start: 20210128, end: 20210202
  14. ENOXAPARIN [Concomitant]
     Active Substance: ENOXAPARIN
     Indication: Thrombosis prophylaxis
     Dosage: 40 MILLIGRAM
     Route: 058
     Dates: start: 20210128, end: 20210202
  15. PANTOPRAZOLE SODIUM [Concomitant]
     Active Substance: PANTOPRAZOLE SODIUM
     Indication: Coronavirus infection
     Dosage: 40 MILLIGRAM
     Route: 048
     Dates: start: 20210202, end: 20210228
  16. ONDANSETRON [Concomitant]
     Active Substance: ONDANSETRON
     Indication: COVID-19
     Dosage: 4 MILLIGRAM
     Route: 042
     Dates: start: 20210130, end: 20210130
  17. OXYCODONE [Concomitant]
     Active Substance: OXYCODONE
     Indication: COVID-19
     Dosage: 5 MILLIGRAM
     Route: 048
     Dates: start: 20210130, end: 20210202
  18. OXYGEN [Concomitant]
     Active Substance: OXYGEN
     Indication: COVID-19
     Dosage: UNK
     Route: 045
     Dates: start: 20210130, end: 20210228
  19. ROBITUSSIN DM [Concomitant]
     Active Substance: DEXTROMETHORPHAN HYDROBROMIDE\GUAIFENESIN
     Indication: COVID-19
     Dosage: 15 MILLILITER
     Route: 048
     Dates: start: 20210203, end: 20210228
  20. VITAMIN D3 [Concomitant]
     Active Substance: CHOLECALCIFEROL
     Indication: COVID-19
     Dosage: 2000 INTERNATIONAL UNIT
     Route: 048
     Dates: start: 20210203, end: 20210828
  21. AUGMENTIN [Concomitant]
     Active Substance: AMOXICILLIN\CLAVULANATE POTASSIUM
     Indication: Tooth infection
     Dosage: 875 MILLIGRAM
     Route: 048
     Dates: start: 20210219, end: 20210306

REACTIONS (5)
  - COVID-19 [Recovered/Resolved]
  - Systemic lupus erythematosus [Not Recovered/Not Resolved]
  - Hereditary angioedema [Recovered/Resolved]
  - Tooth infection [Recovered/Resolved]
  - Arthritis [Not Recovered/Not Resolved]

NARRATIVE: CASE EVENT DATE: 20200201
